FAERS Safety Report 10049324 (Version 2)
Quarter: 2014Q2

REPORT INFORMATION
  Report Type: Spontaneous
  Country: NL (occurrence: NL)
  Receive Date: 20140401
  Receipt Date: 20140401
  Transmission Date: 20141212
  Serious: Yes (Other)
  Sender: FDA-Public Use
  Company Number: NL-009507513-1403NLD006413

PATIENT
  Sex: Female
  Weight: 75 kg

DRUGS (3)
  1. HYZAAR [Suspect]
     Indication: BLOOD PRESSURE ABNORMAL
     Dosage: 1 DD 2, STRENGTH:50MG/12.5MG, TOTAL DAILY DOSE: 100MG/25MG
     Route: 048
     Dates: start: 2012
  2. HYZAAR [Suspect]
     Dosage: 1 DD 2, STRENGTH:50MG/12.5MG, TOTAL DAILY DOSE: 100MG/25MG
     Route: 048
  3. LOSARTAN POTASSIUM (+) HYDROCHLOROTHIAZIDE [Suspect]
     Indication: BLOOD PRESSURE ABNORMAL
     Dosage: UNK
     Route: 048
     Dates: end: 2012

REACTIONS (6)
  - Osteoarthritis [Not Recovered/Not Resolved]
  - Pain in extremity [Not Recovered/Not Resolved]
  - Sleep disorder [Not Recovered/Not Resolved]
  - Cough [Not Recovered/Not Resolved]
  - Nasal congestion [Not Recovered/Not Resolved]
  - Nausea [Not Recovered/Not Resolved]
